FAERS Safety Report 10602592 (Version 1)
Quarter: 2014Q4

REPORT INFORMATION
  Report Type: Spontaneous
  Country: US (occurrence: US)
  Receive Date: 20141124
  Receipt Date: 20141124
  Transmission Date: 20150529
  Serious: No
  Sender: FDA-Public Use
  Company Number: US-NOVEN-14US010019

PATIENT
  Age: 60 Year
  Sex: Female

DRUGS (2)
  1. MINIVELLE [Suspect]
     Active Substance: ESTRADIOL
     Indication: HOT FLUSH
     Dosage: 0.0375 MG/DAY X 2, UNK
     Route: 062
     Dates: start: 2014
  2. MINIVELLE [Suspect]
     Active Substance: ESTRADIOL
     Dosage: 0.075 MG/DAY, UNK
     Route: 062
     Dates: start: 20140711

REACTIONS (4)
  - Drug prescribing error [Unknown]
  - Wrong technique in drug usage process [Unknown]
  - No adverse event [None]
  - Product quality issue [Unknown]

NARRATIVE: CASE EVENT DATE: 201407
